FAERS Safety Report 8197817-7 (Version None)
Quarter: 2012Q1

REPORT INFORMATION
  Report Type: 
  Country: None (occurrence: None)
  Receive Date: 20120309
  Receipt Date: 20120307
  Transmission Date: 20120608
  Serious: Yes (Other)
  Sender: FDA-Public Use
  Company Number: FR-ABBOTT-12P-056-0903149-00

PATIENT
  Sex: Male

DRUGS (2)
  1. HUMIRA [Suspect]
  2. HUMIRA [Suspect]
     Indication: RHEUMATOID ARTHRITIS
     Route: 058
     Dates: start: 20080101

REACTIONS (6)
  - LUNG NEOPLASM MALIGNANT [None]
  - PARANEOPLASTIC SYNDROME [None]
  - PELVIC VENOUS THROMBOSIS [None]
  - THROMBOPHLEBITIS [None]
  - ANTIPHOSPHOLIPID SYNDROME [None]
  - VENOUS THROMBOSIS [None]
